FAERS Safety Report 9253917 (Version 1)
Quarter: 2013Q2

REPORT INFORMATION
  Report Type: Spontaneous
  Country: US (occurrence: None)
  Receive Date: 20130422
  Receipt Date: 20130422
  Transmission Date: 20140414
  Serious: Yes (Other)
  Sender: FDA-Public Use
  Company Number: None

PATIENT
  Age: 66 Year
  Sex: Male
  Weight: 80.74 kg

DRUGS (1)
  1. TROSPIUM [Suspect]
     Indication: URINARY INCONTINENCE
     Dosage: 1  20 MG. CAPSULE  DAILY  PO
     Route: 048
     Dates: start: 20120702, end: 20130421

REACTIONS (2)
  - Constipation [None]
  - Abdominal pain [None]
